FAERS Safety Report 6083396-7 (Version None)
Quarter: 2009Q1

REPORT INFORMATION
  Report Type: 
  Country: None (occurrence: None)
  Receive Date: 20090219
  Receipt Date: 20090119
  Transmission Date: 20090719
  Serious: No
  Sender: FDA-Public Use
  Company Number: US-BAYER-200910206BCC

PATIENT
  Age: 76 Year
  Sex: Female
  Weight: 52 kg

DRUGS (4)
  1. ALEVE (CAPLET) [Suspect]
     Indication: ARTHRALGIA
     Dates: start: 20081201
  2. ENALAPRIL [Concomitant]
  3. LEVOTHROID [Concomitant]
  4. METOPROLOL TARTRATE [Concomitant]

REACTIONS (1)
  - CONSTIPATION [None]
